FAERS Safety Report 9651870 (Version 1)
Quarter: 2013Q4

REPORT INFORMATION
  Report Type: Spontaneous
  Country: US (occurrence: None)
  Receive Date: 20131028
  Receipt Date: 20131028
  Transmission Date: 20140711
  Serious: Yes (Other)
  Sender: FDA-Public Use
  Company Number: None

PATIENT
  Age: 80 Year
  Sex: Male

DRUGS (14)
  1. CRESTOR [Suspect]
     Indication: BLOOD CHOLESTEROL
     Dosage: 26 PILLS OVER 2 MONTHS
  2. LISINOPRIL [Concomitant]
  3. MYOPREX [Concomitant]
  4. ECTORIN [Concomitant]
  5. NEURONTIN [Concomitant]
  6. FLOVENT [Concomitant]
  7. FLONASE [Concomitant]
  8. PROAIR HFA [Concomitant]
  9. ALLOPURINOL [Concomitant]
  10. MULTIVAMINS [Concomitant]
  11. B12 [Concomitant]
  12. VITAMIN C [Concomitant]
  13. EFFEXOR XR [Concomitant]
  14. ZOSTAVAX [Concomitant]

REACTIONS (4)
  - Chills [None]
  - Blood pressure increased [None]
  - Heart rate increased [None]
  - Feeling abnormal [None]
